FAERS Safety Report 4522802-3 (Version None)
Quarter: 2004Q4

REPORT INFORMATION
  Report Type: 
  Country: None (occurrence: None)
  Receive Date: 20041207
  Receipt Date: 20041126
  Transmission Date: 20050328
  Serious: Yes (Hospitalization)
  Sender: FDA-Public Use
  Company Number: BRO-007981

PATIENT
  Age: 55 Year
  Sex: Female

DRUGS (1)
  1. IOPAMIDOL-300 [Suspect]
     Indication: COMPUTERISED TOMOGRAM
     Dosage: 150 ML IV
     Route: 042
     Dates: start: 20041005, end: 20041005

REACTIONS (6)
  - ANAL SPHINCTER ATONY [None]
  - BLADDER SPHINCTER ATONY [None]
  - BRONCHOSPASM [None]
  - DYSPNOEA [None]
  - HYPERHIDROSIS [None]
  - RASH [None]
